FAERS Safety Report 8276781-6 (Version None)
Quarter: 2012Q2

REPORT INFORMATION
  Report Type: 
  Country: None (occurrence: None)
  Receive Date: 20120412
  Receipt Date: 20120409
  Transmission Date: 20120825
  Serious: Yes (Other)
  Sender: FDA-Public Use
  Company Number: GB-PFIZER INC-2012088827

PATIENT
  Age: 36 Year
  Sex: Male

DRUGS (1)
  1. VARENICLINE TARTRATE [Suspect]
     Dosage: UNK
     Route: 048
     Dates: start: 20120130, end: 20120307

REACTIONS (3)
  - ABNORMAL DREAMS [None]
  - PAIN [None]
  - FREQUENT BOWEL MOVEMENTS [None]
